FAERS Safety Report 24913624 (Version 1)
Quarter: 2025Q1

REPORT INFORMATION
  Report Type: Spontaneous
  Country: US (occurrence: US)
  Receive Date: 20250201
  Receipt Date: 20250201
  Transmission Date: 20250409
  Serious: No
  Sender: MERCK
  Company Number: US-009507513-2501USA011459

PATIENT
  Sex: Female

DRUGS (2)
  1. PRIMAXIN IV [Suspect]
     Active Substance: CILASTATIN SODIUM\IMIPENEM
     Indication: Mycobacterium abscessus infection
  2. AMIKACIN [Suspect]
     Active Substance: AMIKACIN
     Indication: Mycobacterium abscessus infection

REACTIONS (2)
  - Impaired healing [Not Recovered/Not Resolved]
  - Product use in unapproved indication [Unknown]
